FAERS Safety Report 13531157 (Version 1)
Quarter: 2017Q2

REPORT INFORMATION
  Report Type: Spontaneous
  Country: US (occurrence: US)
  Receive Date: 20170510
  Receipt Date: 20170510
  Transmission Date: 20170830
  Serious: No
  Sender: FDA-Public Use
  Company Number: None

PATIENT
  Age: 59 Year
  Sex: Female
  Weight: 74.84 kg

DRUGS (6)
  1. MAGNESIUM CITRATE. [Concomitant]
     Active Substance: MAGNESIUM CITRATE
  2. MEDS FOR RESTLESS LEGS [Concomitant]
  3. VITAMINS [Concomitant]
     Active Substance: VITAMINS
  4. ADAVAN [Concomitant]
     Active Substance: UNSPECIFIED INGREDIENT
  5. TYLENOL [Concomitant]
     Active Substance: ACETAMINOPHEN
  6. OXYCODONE HCL 5MG TABS [Suspect]
     Active Substance: OXYCODONE HYDROCHLORIDE
     Indication: LIMB OPERATION
     Dosage: FREQUENCY - TAKE 1 TO 2 TABLETS EVERY 4 HRS/AS NEEDED
     Route: 048
     Dates: start: 20170406, end: 2017

REACTIONS (5)
  - Pain [None]
  - Vomiting [None]
  - Pruritus generalised [None]
  - Nausea [None]
  - Dyspnoea [None]

NARRATIVE: CASE EVENT DATE: 20170406
